FAERS Safety Report 16083611 (Version 4)
Quarter: 2019Q2

REPORT INFORMATION
  Report Type: Report from Study
  Country: CA (occurrence: CA)
  Receive Date: 20190318
  Receipt Date: 20190423
  Transmission Date: 20190711
  Serious: Yes (Other)
  Sender: FDA-Public Use
  Company Number: CA-GLAXOSMITHKLINE-CA2019GSK046864

PATIENT
  Sex: Female

DRUGS (1)
  1. SALBUTAMOL SULPHATE [Suspect]
     Active Substance: ALBUTEROL SULFATE
     Indication: ASTHMA
     Dosage: 1-2 PUFFS
     Route: 055

REACTIONS (5)
  - Influenza [Unknown]
  - Bronchial disorder [Unknown]
  - Malaise [Unknown]
  - Cough [Unknown]
  - Knee arthroplasty [Unknown]
